FAERS Safety Report 9438083 (Version 1)
Quarter: 2013Q3

REPORT INFORMATION
  Report Type: Spontaneous
  Country: US (occurrence: None)
  Receive Date: 20130802
  Receipt Date: 20130802
  Transmission Date: 20140515
  Serious: No
  Sender: FDA-Public Use
  Company Number: None

PATIENT
  Age: 64 Year
  Sex: Female

DRUGS (1)
  1. FORTEO [Suspect]
     Dosage: ?INJECT 20 MCG? UNDER THE SKEN
     Dates: start: 20120626

REACTIONS (5)
  - Swelling [None]
  - Pain in jaw [None]
  - Arthralgia [None]
  - Pain [None]
  - Muscle spasms [None]
